FAERS Safety Report 4900549-9 (Version None)
Quarter: 2006Q1

REPORT INFORMATION
  Report Type: 
  Country: None (occurrence: None)
  Receive Date: 20060203
  Receipt Date: 20060126
  Transmission Date: 20060701
  Serious: Yes (Hospitalization)
  Sender: FDA-Public Use
  Company Number: 2006PK00261

PATIENT
  Age: 85 Year
  Sex: Female
  Weight: 56 kg

DRUGS (7)
  1. SEROQUEL [Suspect]
     Indication: SLEEP DISORDER
     Route: 048
     Dates: start: 20050901, end: 20050922
  2. NEURONTIN [Interacting]
     Indication: PAIN
     Route: 048
     Dates: end: 20050901
  3. LIORESAL [Interacting]
     Indication: PAIN
     Route: 048
     Dates: end: 20050901
  4. TOFRANIL [Interacting]
     Route: 048
     Dates: end: 20050901
  5. TEMESTA [Interacting]
     Route: 048
     Dates: end: 20050901
  6. AULIN [Concomitant]
     Indication: PAIN
  7. NEXIUM [Concomitant]
     Route: 048

REACTIONS (5)
  - COMA [None]
  - CONFUSIONAL STATE [None]
  - DRUG INTERACTION [None]
  - OVERDOSE [None]
  - SOPOR [None]
